FAERS Safety Report 15073711 (Version 1)
Quarter: 2018Q2

REPORT INFORMATION
  Report Type: Spontaneous
  Country: GT (occurrence: GT)
  Receive Date: 20180627
  Receipt Date: 20180627
  Transmission Date: 20180711
  Serious: Yes (Other)
  Sender: FDA-Public Use
  Company Number: GT-MERCK KGAA-2050033

PATIENT
  Sex: Female

DRUGS (2)
  1. EUTHYROX 50 [Suspect]
     Active Substance: LEVOTHYROXINE SODIUM
     Dates: start: 201710
  2. NOVOTHYROX [Suspect]
     Active Substance: LEVOTHYROXINE SODIUM
     Indication: THYROID HORMONE REPLACEMENT THERAPY
     Dates: start: 20171014

REACTIONS (8)
  - Dizziness [None]
  - Depressed mood [None]
  - Extra dose administered [None]
  - Headache [None]
  - Malaise [None]
  - Somnolence [None]
  - Hyperthyroidism [None]
  - Feeling abnormal [None]

NARRATIVE: CASE EVENT DATE: 2017
